FAERS Safety Report 6924172-X (Version None)
Quarter: 2010Q3

REPORT INFORMATION
  Report Type: 
  Country: None (occurrence: None)
  Receive Date: 20100812
  Receipt Date: 20100812
  Transmission Date: 20110219
  Serious: Yes (Hospitalization)
  Sender: FDA-Public Use
  Company Number: None

PATIENT
  Age: 47 Year
  Sex: Female
  Weight: 120.2032 kg

DRUGS (1)
  1. ACTONEL [Suspect]
     Indication: OSTEOPENIA
     Dosage: 1 PILL ONCE A WEEK PO
     Route: 048
     Dates: start: 20000101, end: 20070101

REACTIONS (4)
  - BALANCE DISORDER [None]
  - BONE PAIN [None]
  - FEMUR FRACTURE [None]
  - PAIN IN EXTREMITY [None]
